FAERS Safety Report 5811643-2 (Version None)
Quarter: 2008Q3

REPORT INFORMATION
  Report Type: 
  Country: None (occurrence: None)
  Receive Date: 20080716
  Receipt Date: 20080709
  Transmission Date: 20090109
  Serious: Yes (Other)
  Sender: FDA-Public Use
  Company Number: US-ASTRAZENECA-2003UW13685

PATIENT
  Age: 74 Year
  Sex: Male
  Weight: 79.4 kg

DRUGS (6)
  1. CASODEX [Suspect]
     Indication: PROSTATE CANCER
     Route: 048
     Dates: start: 20020101, end: 20030401
  2. ZOLADEX [Suspect]
     Indication: PROSTATE CANCER
     Route: 058
     Dates: start: 20050101, end: 20070701
  3. ZOLADEX [Suspect]
     Route: 058
     Dates: start: 20020101, end: 20030401
  4. ZOLADEX [Suspect]
     Route: 048
     Dates: start: 20070701, end: 20071001
  5. COUMADIN [Concomitant]
     Indication: ANTICOAGULANT THERAPY
  6. LANOXIN [Concomitant]

REACTIONS (7)
  - BONE PAIN [None]
  - CEREBROVASCULAR ACCIDENT [None]
  - HOT FLUSH [None]
  - HYPERHIDROSIS [None]
  - HYPERTENSION [None]
  - NERVOUS SYSTEM DISORDER [None]
  - QUALITY OF LIFE DECREASED [None]
